FAERS Safety Report 15902817 (Version 2)
Quarter: 2025Q3

REPORT INFORMATION
  Report Type: Spontaneous
  Country: EU (occurrence: EU)
  Receive Date: 20190202
  Receipt Date: 20250722
  Transmission Date: 20251020
  Serious: Yes (Other)
  Sender: AUROBINDO
  Company Number: EU-AUROBINDO-AUR-APL-2019-004467

PATIENT
  Age: 11 Year
  Sex: Male

DRUGS (6)
  1. TOPIRAMATE [Suspect]
     Active Substance: TOPIRAMATE
     Indication: Epilepsy
     Route: 065
  2. CLOBAZAM [Suspect]
     Active Substance: CLOBAZAM
     Indication: Epilepsy
     Route: 065
  3. CLOBAZAM [Suspect]
     Active Substance: CLOBAZAM
     Route: 065
  4. ETHOSUXIMIDE [Suspect]
     Active Substance: ETHOSUXIMIDE
     Indication: Epilepsy
     Route: 065
  5. ETHOSUXIMIDE [Suspect]
     Active Substance: ETHOSUXIMIDE
     Route: 065
  6. VALPROIC ACID [Suspect]
     Active Substance: VALPROIC ACID
     Indication: Epilepsy
     Route: 065

REACTIONS (5)
  - Suicidal ideation [Unknown]
  - Memory impairment [Unknown]
  - Epilepsy [Recovered/Resolved]
  - Cognitive disorder [Unknown]
  - Drug ineffective [Unknown]
